FAERS Safety Report 12876143 (Version 1)
Quarter: 2016Q4

REPORT INFORMATION
  Report Type: Spontaneous
  Country: US (occurrence: US)
  Receive Date: 20161024
  Receipt Date: 20161024
  Transmission Date: 20170207
  Serious: No
  Sender: FDA-Public Use
  Company Number: US-JAZZ-2016-US-015296

PATIENT
  Age: 18 Year
  Sex: Male

DRUGS (11)
  1. XYREM [Suspect]
     Active Substance: SODIUM OXYBATE
     Indication: CATAPLEXY
     Dosage: 3.75 FIRST DOSE
     Route: 048
     Dates: start: 2016
  2. IRON [Concomitant]
     Active Substance: IRON
  3. ZYRTEC [Concomitant]
     Active Substance: CETIRIZINE HYDROCHLORIDE
  4. NUVIGIL [Concomitant]
     Active Substance: ARMODAFINIL
  5. AMOXICILLIN. [Concomitant]
     Active Substance: AMOXICILLIN
  6. XYREM [Suspect]
     Active Substance: SODIUM OXYBATE
     Indication: NARCOLEPSY
     Dosage: 2.25 G, BID
     Route: 048
     Dates: start: 201608, end: 2016
  7. PROZAC [Concomitant]
     Active Substance: FLUOXETINE HYDROCHLORIDE
  8. MELATONIN [Concomitant]
     Active Substance: MELATONIN
  9. VITAMIN C [Concomitant]
     Active Substance: ASCORBIC ACID
  10. XYREM [Suspect]
     Active Substance: SODIUM OXYBATE
     Dosage: 3.5 G, SECOND DOSE
     Route: 048
     Dates: start: 2016
  11. VITAMIN D3 [Concomitant]
     Active Substance: CHOLECALCIFEROL

REACTIONS (5)
  - Visual impairment [Unknown]
  - Wrong technique in product usage process [Unknown]
  - Abnormal behaviour [Unknown]
  - Memory impairment [Unknown]
  - Inappropriate schedule of drug administration [Unknown]

NARRATIVE: CASE EVENT DATE: 201608
